FAERS Safety Report 11913066 (Version 2)
Quarter: 2017Q3

REPORT INFORMATION
  Report Type: Report from Study
  Country: KG (occurrence: KG)
  Receive Date: 20160113
  Receipt Date: 20170804
  Transmission Date: 20171127
  Serious: Yes (Death)
  Sender: FDA-Public Use
  Company Number: PHHY2016KG002590

PATIENT
  Age: 73 Year
  Sex: Female

DRUGS (1)
  1. GLIVEC [Suspect]
     Active Substance: IMATINIB MESYLATE
     Indication: CHRONIC MYELOID LEUKAEMIA
     Dosage: 400 MG
     Route: 065

REACTIONS (2)
  - Cerebrovascular accident [Fatal]
  - Cardiac failure [Fatal]

NARRATIVE: CASE EVENT DATE: 201601
